FAERS Safety Report 17975859 (Version 4)
Quarter: 2020Q4

REPORT INFORMATION
  Report Type: Spontaneous
  Country: US (occurrence: US)
  Receive Date: 20200702
  Receipt Date: 20201029
  Transmission Date: 20210113
  Serious: Yes (Other)
  Sender: FDA-Public Use
  Company Number: US-PFIZER INC-2020254112

PATIENT
  Age: 53 Year
  Sex: Female
  Weight: 97.51 kg

DRUGS (6)
  1. XGEVA [Concomitant]
     Active Substance: DENOSUMAB
     Dosage: UNK
     Dates: start: 20200504
  2. IBRANCE [Suspect]
     Active Substance: PALBOCICLIB
     Dosage: UNK
  3. FASLODEX [Concomitant]
     Active Substance: FULVESTRANT
     Dosage: UNK
     Dates: start: 20200504
  4. GABAPENTIN. [Concomitant]
     Active Substance: GABAPENTIN
     Indication: NEUROPATHY PERIPHERAL
     Dosage: UNK
  5. VITAMIN D2 [Concomitant]
     Active Substance: ERGOCALCIFEROL
     Dosage: UNK
  6. IBRANCE [Suspect]
     Active Substance: PALBOCICLIB
     Indication: BREAST CANCER FEMALE
     Dosage: 125 MG, CYCLIC (125 MG, DAILY [1 DAILY FOR 21 DAYS ON, 7 DAYS OFF]
     Route: 048
     Dates: start: 20200504

REACTIONS (9)
  - Eye pain [Recovered/Resolved]
  - Neuropathy peripheral [Unknown]
  - Arthralgia [Unknown]
  - Photophobia [Recovered/Resolved]
  - Bone pain [Unknown]
  - Visual impairment [Recovered/Resolved]
  - Musculoskeletal chest pain [Unknown]
  - Dry eye [Recovering/Resolving]
  - Vision blurred [Recovering/Resolving]

NARRATIVE: CASE EVENT DATE: 2020
